FAERS Safety Report 23292426 (Version 1)
Quarter: 2023Q4

REPORT INFORMATION
  Report Type: Spontaneous
  Country: None (occurrence: US)
  Receive Date: 20231213
  Receipt Date: 20231213
  Transmission Date: 20240110
  Serious: Yes (Other)
  Sender: FDA-Public Use
  Company Number: US-Jiangsu Hansoh Pharmaceutical Co., Ltd-2149312

PATIENT
  Age: 69 Year
  Sex: Male

DRUGS (6)
  1. BORTEZOMIB [Suspect]
     Active Substance: BORTEZOMIB
     Indication: Plasma cell myeloma
  2. DEXAMETHASONE [Suspect]
     Active Substance: DEXAMETHASONE
  3. CISPLATIN [Suspect]
     Active Substance: CISPLATIN
  4. DOXORUBICIN [Suspect]
     Active Substance: DOXORUBICIN
  5. CYCLOPHOSPHAMIDE [Suspect]
     Active Substance: CYCLOPHOSPHAMIDE
  6. ETOPOSIDE [Suspect]
     Active Substance: ETOPOSIDE

REACTIONS (4)
  - Neutropenic sepsis [Unknown]
  - Pancytopenia [Unknown]
  - Actinic keratosis [Recovered/Resolved]
  - Acute kidney injury [Unknown]
